FAERS Safety Report 11292892 (Version 1)
Quarter: 2015Q3

REPORT INFORMATION
  Report Type: Spontaneous
  Country: CH (occurrence: CH)
  Receive Date: 20150722
  Receipt Date: 20150722
  Transmission Date: 20151125
  Serious: Yes (Other)
  Sender: FDA-Public Use
  Company Number: CH-JNJFOC-20150711570

PATIENT
  Age: 7 Decade
  Sex: Female

DRUGS (1)
  1. IMBRUVICA [Suspect]
     Active Substance: IBRUTINIB
     Indication: CHRONIC LYMPHOCYTIC LEUKAEMIA
     Dosage: 11-JUL-2015 OR 12-JUL-2015
     Dates: start: 201507

REACTIONS (3)
  - Purpura [Unknown]
  - Eczema [Unknown]
  - Drug eruption [Unknown]
